FAERS Safety Report 19185939 (Version 3)
Quarter: 2021Q2

REPORT INFORMATION
  Report Type: Other
  Country: DE (occurrence: DE)
  Receive Date: 20210427
  Receipt Date: 20210510
  Transmission Date: 20210717
  Serious: Yes (Death, Hospitalization)
  Sender: FDA-Public Use
  Company Number: DE-ROCHE-2778936

PATIENT
  Age: 53 Year
  Sex: Female

DRUGS (15)
  1. GRANISETRON [Concomitant]
     Active Substance: GRANISETRON
     Route: 048
     Dates: start: 20210217
  2. PREDNISOLON [Concomitant]
     Active Substance: PREDNISOLONE
     Route: 042
     Dates: start: 20210311, end: 20210311
  3. SUCRABEST [Concomitant]
     Active Substance: SUCRALFATE
     Route: 048
     Dates: start: 20210408, end: 20210414
  4. NAB?PACLITAXEL [Suspect]
     Active Substance: PACLITAXEL
     Indication: NON-SMALL CELL LUNG CANCER
     Dosage: ON 01/APR/2021, RECEIVED LAST DOSE OF PACLITAXEL 175 MG/M2 PRIOR TO EVENT
     Route: 042
  5. CARBOPLATIN. [Suspect]
     Active Substance: CARBOPLATIN
     Indication: NON-SMALL CELL LUNG CANCER
     Dosage: ON 01/APR/2021, RECEIVED LAST DOSE OF CARBOPLATIN 5 MG/MIN/ML PRIOR TO EVENT
     Route: 042
     Dates: start: 20210217
  6. ADRENALIN [Concomitant]
     Active Substance: EPINEPHRINE
     Dates: start: 20210311
  7. ATEZOLIZUMAB. [Suspect]
     Active Substance: ATEZOLIZUMAB
     Indication: NON-SMALL CELL LUNG CANCER
     Dosage: ON 01/APR/2021, RECEIVED LAST DOSE OF ATEZOLIZUMAB 1200 MG PRIOR TO EVENT
     Route: 041
     Dates: start: 20210217
  8. PANTOPRAZOL [Concomitant]
     Active Substance: PANTOPRAZOLE SODIUM
     Route: 048
     Dates: start: 20210408, end: 20210414
  9. ENOXAPARIN [Concomitant]
     Active Substance: ENOXAPARIN
     Route: 058
     Dates: start: 20210309
  10. BEVACIZUMAB. [Suspect]
     Active Substance: BEVACIZUMAB
     Indication: NON-SMALL CELL LUNG CANCER
     Dosage: ON 01/APR/2021, RECEIVED LAST DOSE OF BEVACIZUMAB 15 MG/KG PRIOR TO EVENT
     Route: 042
     Dates: start: 20210217
  11. VALSARTAN. [Concomitant]
     Active Substance: VALSARTAN
     Indication: HYPERTENSION
     Route: 048
  12. ACICLOVIR [Concomitant]
     Active Substance: ACYCLOVIR
     Route: 048
     Dates: start: 20210215, end: 20210221
  13. DEXAMETHASON [Concomitant]
     Active Substance: DEXAMETHASONE
     Route: 048
     Dates: start: 20210218
  14. CEFUROXIM [Concomitant]
     Active Substance: CEFUROXIME
     Route: 048
     Dates: start: 20210316
  15. PREDNISOLUT [Concomitant]
     Active Substance: PREDNISOLONE
     Route: 042

REACTIONS (6)
  - Hypersensitivity [Recovered/Resolved]
  - Skin infection [Recovered/Resolved]
  - Oesophagitis [Not Recovered/Not Resolved]
  - Cough [Recovered/Resolved]
  - Skin infection [Recovered/Resolved]
  - Lung abscess [Fatal]

NARRATIVE: CASE EVENT DATE: 20210311
